FAERS Safety Report 20311746 (Version 4)
Quarter: 2022Q2

REPORT INFORMATION
  Report Type: Report from Study
  Country: US (occurrence: None)
  Receive Date: 20220108
  Receipt Date: 20220511
  Transmission Date: 20220720
  Serious: Yes (Death, Hospitalization, Other)
  Sender: FDA-Public Use
  Company Number: US-ROCHE-2993041

PATIENT
  Age: 80 Year
  Sex: Male
  Weight: 69.9 kg

DRUGS (24)
  1. ATEZOLIZUMAB [Suspect]
     Active Substance: ATEZOLIZUMAB
     Indication: Colon cancer
     Route: 041
     Dates: start: 20210811, end: 20210826
  2. FLUOROURACIL [Suspect]
     Active Substance: FLUOROURACIL
     Indication: Colon cancer
     Route: 065
     Dates: start: 20210811, end: 20210826
  3. LEUCOVORIN CALCIUM [Suspect]
     Active Substance: LEUCOVORIN CALCIUM
     Indication: Colon cancer
     Route: 065
     Dates: start: 20210811, end: 20210826
  4. OXALIPLATIN [Suspect]
     Active Substance: OXALIPLATIN
     Indication: Colon cancer
     Route: 065
     Dates: start: 20210811, end: 20210826
  5. CLONIDINE [Concomitant]
     Active Substance: CLONIDINE
  6. HYDROCHLOROTHIAZIDE [Concomitant]
     Active Substance: HYDROCHLOROTHIAZIDE
  7. IRBESARTAN [Concomitant]
     Active Substance: IRBESARTAN
  8. LEVOFLOXACIN [Concomitant]
     Active Substance: LEVOFLOXACIN
  9. MEGESTROL [Concomitant]
     Active Substance: MEGESTROL
  10. METOPROLOL [Concomitant]
     Active Substance: METOPROLOL
  11. NOVOLOG [Concomitant]
     Active Substance: INSULIN ASPART
  12. OMEPRAZOLE [Concomitant]
     Active Substance: OMEPRAZOLE
  13. ONDANSETRON [Concomitant]
     Active Substance: ONDANSETRON
  14. PROCHLORPERAZINE [Concomitant]
     Active Substance: PROCHLORPERAZINE
  15. PROMETHAZINE [Concomitant]
     Active Substance: PROMETHAZINE HYDROCHLORIDE
  16. RIVAROXABAN [Concomitant]
     Active Substance: RIVAROXABAN
  17. ROSUVASTATIN [Concomitant]
     Active Substance: ROSUVASTATIN
  18. SEMAGLUTIDE [Concomitant]
     Active Substance: SEMAGLUTIDE
  19. OZEMPIC [Concomitant]
     Active Substance: SEMAGLUTIDE
  20. MEGACE [Concomitant]
     Active Substance: MEGESTROL ACETATE
  21. METFORMIN [Concomitant]
     Active Substance: METFORMIN HYDROCHLORIDE
  22. ACETAMINOPHEN [Concomitant]
     Active Substance: ACETAMINOPHEN
  23. ASPIRIN [Concomitant]
     Active Substance: ASPIRIN
  24. CRESTOR [Concomitant]
     Active Substance: ROSUVASTATIN CALCIUM

REACTIONS (17)
  - Sepsis [Fatal]
  - White blood cell count decreased [Unknown]
  - Acute kidney injury [Unknown]
  - Hypophosphataemia [Unknown]
  - Atrial flutter [Unknown]
  - Blood creatinine increased [Unknown]
  - Hypoalbuminaemia [Unknown]
  - Supraventricular tachycardia [Unknown]
  - Blood bicarbonate decreased [Unknown]
  - Troponin I increased [Unknown]
  - Angina pectoris [Unknown]
  - Chills [Unknown]
  - Pyrexia [Unknown]
  - Fall [Unknown]
  - Haemorrhage intracranial [Recovering/Resolving]
  - Syncope [Recovering/Resolving]
  - Neutrophil count decreased [Unknown]

NARRATIVE: CASE EVENT DATE: 20210815
